FAERS Safety Report 19108037 (Version 1)
Quarter: 2021Q2

REPORT INFORMATION
  Report Type: Spontaneous
  Country: US (occurrence: US)
  Receive Date: 20210408
  Receipt Date: 20210408
  Transmission Date: 20210717
  Serious: No
  Sender: FDA-Public Use
  Company Number: None

PATIENT
  Age: 50 Year
  Sex: Female
  Weight: 83.25 kg

DRUGS (4)
  1. VITAMIN D [Concomitant]
     Active Substance: VITAMIN D NOS
  2. VITAMIN C [Concomitant]
     Active Substance: ASCORBIC ACID
  3. ONE A DAY WOMEN^S VITMAINS [Concomitant]
  4. BLISTEX ORANGE MANGO BLAST [Suspect]
     Active Substance: DIMETHICONE\OCTINOXATE\OXYBENZONE
     Indication: CHAPPED LIPS
     Route: 061
     Dates: start: 20210317, end: 20210318

REACTIONS (4)
  - Lip pruritus [None]
  - Lip swelling [None]
  - Skin weeping [None]
  - Oral discomfort [None]

NARRATIVE: CASE EVENT DATE: 20210319
